FAERS Safety Report 16163902 (Version 2)
Quarter: 2019Q2

REPORT INFORMATION
  Report Type: Spontaneous
  Country: RU (occurrence: RU)
  Receive Date: 20190405
  Receipt Date: 20190416
  Transmission Date: 20190711
  Serious: Yes (Hospitalization)
  Sender: FDA-Public Use
  Company Number: RU-JNJFOC-20190407240

PATIENT
  Age: 85 Year
  Sex: Female

DRUGS (9)
  1. XARELTO [Suspect]
     Active Substance: RIVAROXABAN
     Indication: CEREBROVASCULAR ACCIDENT PROPHYLAXIS
     Route: 048
     Dates: start: 2016, end: 20190315
  2. XARELTO [Suspect]
     Active Substance: RIVAROXABAN
     Indication: ATRIAL FIBRILLATION
     Route: 048
     Dates: start: 2016, end: 20190315
  3. DIGOXIN. [Concomitant]
     Active Substance: DIGOXIN
     Route: 048
  4. XARELTO [Suspect]
     Active Substance: RIVAROXABAN
     Indication: CEREBROVASCULAR ACCIDENT PROPHYLAXIS
     Route: 048
  5. CARDIOMAGNYL [Suspect]
     Active Substance: ASPIRIN\MAGNESIUM HYDROXIDE
     Indication: ATRIAL FIBRILLATION
     Route: 048
     Dates: start: 2016, end: 2016
  6. LOZAP PLUS [Concomitant]
     Active Substance: HYDROCHLOROTHIAZIDE\LOSARTAN POTASSIUM
     Route: 048
  7. CARDIOMAGNYL [Suspect]
     Active Substance: ASPIRIN\MAGNESIUM HYDROXIDE
     Indication: CEREBROVASCULAR ACCIDENT PROPHYLAXIS
     Route: 048
     Dates: start: 2016, end: 2016
  8. XARELTO [Suspect]
     Active Substance: RIVAROXABAN
     Indication: ATRIAL FIBRILLATION
     Route: 048
  9. INDAPAMIDE. [Concomitant]
     Active Substance: INDAPAMIDE
     Route: 048

REACTIONS (2)
  - Gastrointestinal haemorrhage [Recovered/Resolved]
  - Gastric ulcer [Recovered/Resolved]

NARRATIVE: CASE EVENT DATE: 20190312
